FAERS Safety Report 9908438 (Version 3)
Quarter: 2014Q1

REPORT INFORMATION
  Report Type: Report from Study
  Country: CA (occurrence: CA)
  Receive Date: 20140219
  Receipt Date: 20140314
  Transmission Date: 20141002
  Serious: Yes (Other)
  Sender: FDA-Public Use
  Company Number: CA-BAYER-2014-001604

PATIENT
  Age: 35 Year
  Sex: Female

DRUGS (12)
  1. BETASERON [Suspect]
     Indication: MULTIPLE SCLEROSIS
     Dosage: 0.250 MG, UNK
     Dates: start: 20130520
  2. ADVIL [Concomitant]
     Indication: PREMEDICATION
  3. MIRTAZAPINE [Concomitant]
  4. OLANZAPINE [Concomitant]
  5. ZOPLICONE [Concomitant]
     Dosage: 7.5 MG AT BED TIME
  6. WELLBUTRIN [Concomitant]
     Dosage: 450 MG, QD
  7. APO PROPRANOLOL [Concomitant]
     Dosage: 20 MG, BID
  8. PERCOCET [Concomitant]
     Dosage: UNK UNK, PRN
  9. VITAMIN D [Concomitant]
     Dosage: 20000 IU, UNK
  10. HYDROCHLOROTHIAZIDE [Concomitant]
     Dosage: UNK
     Dates: start: 20131218
  11. LORAZEPAM [Concomitant]
     Dosage: 1 MG, DAILY
  12. BENZOTROPINE [Concomitant]
     Dosage: 2 MG, UNK,DAILY

REACTIONS (10)
  - Abnormal loss of weight [Unknown]
  - Nausea [Unknown]
  - Vomiting [Unknown]
  - Vomiting [Unknown]
  - Dizziness [Unknown]
  - Head injury [Unknown]
  - Accident [Unknown]
  - Contusion [Unknown]
  - Blood potassium decreased [None]
  - Depression [None]
